FAERS Safety Report 5891104-5 (Version None)
Quarter: 2008Q3

REPORT INFORMATION
  Report Type: 
  Country: None (occurrence: None)
  Receive Date: 20080918
  Receipt Date: 20080918
  Transmission Date: 20090109
  Serious: Yes (Other)
  Sender: FDA-Public Use
  Company Number: None

PATIENT
  Age: 87 Year
  Sex: Female
  Weight: 43.9989 kg

DRUGS (2)
  1. FOSINOPRIL SODIUM [Suspect]
     Indication: VEIN DISORDER
     Dosage: 1 DAILY PO
     Route: 048
     Dates: start: 20080301, end: 20080803
  2. CEPHALEXIN [Suspect]
     Indication: BLOOD PRESSURE
     Dosage: 2 DAILY PO
     Route: 048
     Dates: start: 20080401, end: 20080917

REACTIONS (4)
  - DIARRHOEA [None]
  - IMPAIRED SELF-CARE [None]
  - INCOHERENT [None]
  - TRANSIENT ISCHAEMIC ATTACK [None]
